FAERS Safety Report 11806010 (Version 1)
Quarter: 2015Q4

REPORT INFORMATION
  Report Type: Spontaneous
  Country: US (occurrence: US)
  Receive Date: 20151207
  Receipt Date: 20151207
  Transmission Date: 20160305
  Serious: No
  Sender: FDA-Public Use
  Company Number: US-009507513-1511USA012438

PATIENT
  Sex: Female

DRUGS (1)
  1. NEXPLANON [Suspect]
     Active Substance: ETONOGESTREL
     Indication: CONTRACEPTION
     Dosage: 1 ROD / 3 YEARS
     Route: 059
     Dates: start: 201507, end: 201511

REACTIONS (4)
  - Device breakage [Recovered/Resolved]
  - Implant site swelling [Recovered/Resolved]
  - Drug hypersensitivity [Unknown]
  - Implant site erythema [Recovered/Resolved]

NARRATIVE: CASE EVENT DATE: 2015
